FAERS Safety Report 7584675-4 (Version None)
Quarter: 2011Q2

REPORT INFORMATION
  Report Type: 
  Country: None (occurrence: None)
  Receive Date: 20110630
  Receipt Date: 20110628
  Transmission Date: 20111010
  Serious: Yes (Other)
  Sender: FDA-Public Use
  Company Number: US-MYLANLABS-2011S1011336

PATIENT
  Age: 14 Year
  Sex: Female
  Weight: 52.16 kg

DRUGS (2)
  1. AMNESTEEM [Suspect]
     Route: 048
     Dates: start: 20110101
  2. AMNESTEEM [Suspect]
     Indication: ACNE
     Route: 048
     Dates: start: 20110401, end: 20110413

REACTIONS (2)
  - LIGAMENT RUPTURE [None]
  - MENISCUS LESION [None]
